FAERS Safety Report 6036853-3 (Version None)
Quarter: 2009Q1

REPORT INFORMATION
  Report Type: 
  Country: None (occurrence: None)
  Receive Date: 20090114
  Receipt Date: 20090106
  Transmission Date: 20090719
  Serious: Yes (Life-Threatening, Hospitalization, Other)
  Sender: FDA-Public Use
  Company Number: US-AVENTIS-200610952US

PATIENT
  Sex: Female
  Weight: 65.9 kg

DRUGS (20)
  1. KETEK [Suspect]
     Dates: start: 20060118, end: 20060122
  2. KETEK [Suspect]
     Dates: start: 20050110
  3. KETEK [Suspect]
     Dates: start: 20060118, end: 20060122
  4. KETEK [Suspect]
     Dates: start: 20050110
  5. PROTONIX [Concomitant]
  6. ASPIRIN [Concomitant]
  7. THIAZIDE [Concomitant]
  8. PREMPRO [Concomitant]
     Dosage: DOSE: 0.45MG/1.5MG
  9. NAPROXEN [Concomitant]
     Dosage: DOSE: UNK
  10. ASTELIN                            /00884002/ [Concomitant]
     Dosage: DOSE: 30 MI BID PRN
     Dates: end: 20060129
  11. PATANOL [Concomitant]
  12. NASONEX [Concomitant]
     Dosage: DOSE: 50 MCL
  13. K-DUR [Concomitant]
  14. OCUVITE                            /01053801/ [Concomitant]
     Dosage: DOSE: 1 DAILY
  15. TYLENOL (CAPLET) [Concomitant]
     Dosage: DOSE: 4 GMS OVER 10 DAYS
  16. ALPRAZOLAM [Concomitant]
  17. THYROID TAB [Concomitant]
  18. K-DUR [Concomitant]
  19. ATENOLOL / CHLORO [Concomitant]
  20. LISINOPRIL [Concomitant]

REACTIONS (24)
  - ACUTE HEPATIC FAILURE [None]
  - ALANINE AMINOTRANSFERASE INCREASED [None]
  - ASPARTATE AMINOTRANSFERASE INCREASED [None]
  - ASTHENIA [None]
  - AUTOIMMUNE HEPATITIS [None]
  - BILIARY CIRRHOSIS PRIMARY [None]
  - BILIRUBIN CONJUGATED INCREASED [None]
  - BLOOD BILIRUBIN INCREASED [None]
  - CHROMATURIA [None]
  - COAGULOPATHY [None]
  - FAECES PALE [None]
  - FEELING ABNORMAL [None]
  - HEPATITIS [None]
  - HYPOKALAEMIA [None]
  - IMMUNOLOGY TEST ABNORMAL [None]
  - INSOMNIA [None]
  - INTERNATIONAL NORMALISED RATIO INCREASED [None]
  - JAUNDICE [None]
  - MALAISE [None]
  - NAUSEA [None]
  - OCULAR ICTERUS [None]
  - SKIN DISCOLOURATION [None]
  - THROMBOCYTOPENIA [None]
  - VOMITING [None]
